FAERS Safety Report 15000969 (Version 1)
Quarter: 2018Q3

REPORT INFORMATION
  Report Type: Spontaneous
  Country: US (occurrence: US)
  Receive Date: 20180612
  Receipt Date: 20180612
  Transmission Date: 20181010
  Serious: No
  Sender: FDA-Public Use
  Company Number: US-SA-2018SA152915

PATIENT
  Sex: Male

DRUGS (1)
  1. UNISOM NIGHT TIME SLEEP?AID [Suspect]
     Active Substance: DIPHENHYDRAMINE HYDROCHLORIDE

REACTIONS (3)
  - Insomnia [Unknown]
  - Influenza [Unknown]
  - Drug ineffective [Unknown]
